FAERS Safety Report 9104022 (Version 1)
Quarter: 2013Q1

REPORT INFORMATION
  Report Type: Spontaneous
  Country: ZA (occurrence: ZA)
  Receive Date: 20130219
  Receipt Date: 20130219
  Transmission Date: 20140127
  Serious: Yes (Death)
  Sender: FDA-Public Use
  Company Number: ZA-009507513-1302ZAF008302

PATIENT
  Sex: 0

DRUGS (1)
  1. CANCIDAS 50MG [Suspect]

REACTIONS (1)
  - Death [Fatal]
